FAERS Safety Report 5962489-6 (Version None)
Quarter: 2008Q4

REPORT INFORMATION
  Report Type: 
  Country: None (occurrence: None)
  Receive Date: 20081121
  Receipt Date: 20081111
  Transmission Date: 20090506
  Serious: Yes (Hospitalization, Other)
  Sender: FDA-Public Use
  Company Number: US-PFIZER INC-2008085750

PATIENT
  Age: 76 Year
  Sex: Female
  Weight: 104.8 kg

DRUGS (14)
  1. LYRICA [Suspect]
     Indication: PAIN
     Route: 048
     Dates: start: 20080101
  2. ATENOLOL [Concomitant]
  3. LASIX [Concomitant]
  4. OMEPRAZOLE [Concomitant]
  5. PREMARIN [Concomitant]
  6. DARIFENACIN [Concomitant]
  7. LOTENSIN [Concomitant]
  8. PREDNISONE TAB [Concomitant]
  9. METHOTREXATE [Concomitant]
  10. SULINDAC [Concomitant]
  11. TEMAZEPAM [Concomitant]
  12. CYMBALTA [Concomitant]
  13. DOXYCYCLINE [Concomitant]
  14. OXYCODONE HCL [Concomitant]

REACTIONS (7)
  - AORTIC ARTERIOSCLEROSIS [None]
  - CELLULITIS [None]
  - FIBRIN D DIMER INCREASED [None]
  - HEPATIC STEATOSIS [None]
  - IRON DEFICIENCY ANAEMIA [None]
  - OEDEMA PERIPHERAL [None]
  - WEIGHT DECREASED [None]
